FAERS Safety Report 21500850 (Version 1)
Quarter: 2022Q4

REPORT INFORMATION
  Report Type: Spontaneous
  Country: DE (occurrence: DE)
  Receive Date: 20221025
  Receipt Date: 20221025
  Transmission Date: 20230112
  Serious: Yes (Other)
  Sender: FDA-Public Use
  Company Number: DE-ABBVIE-4174000

PATIENT
  Age: 45 Year
  Sex: Male

DRUGS (1)
  1. TESTOSTERONE [Suspect]
     Active Substance: TESTOSTERONE
     Indication: Loss of libido
     Dosage: SACHET PER DAY (1 IN 1 D)
     Route: 065

REACTIONS (4)
  - Osteonecrosis [Recovered/Resolved]
  - Polycythaemia [Unknown]
  - Oedema [Unknown]
  - Arthralgia [Unknown]
